FAERS Safety Report 12079832 (Version 2)
Quarter: 2016Q2

REPORT INFORMATION
  Report Type: Spontaneous
  Country: JP (occurrence: JP)
  Receive Date: 20160216
  Receipt Date: 20160411
  Transmission Date: 20160815
  Serious: Yes (Hospitalization, Other)
  Sender: FDA-Public Use
  Company Number: JP-GLAXOSMITHKLINE-JP2016JPN017675

PATIENT
  Age: 10 Year
  Sex: Female
  Weight: 27 kg

DRUGS (2)
  1. FLUTIDE DISKUS [Suspect]
     Active Substance: FLUTICASONE PROPIONATE
     Indication: ASTHMA
     Dosage: 100 ?G, BID
     Route: 055
  2. SERETIDE [Suspect]
     Active Substance: FLUTICASONE PROPIONATE\SALMETEROL XINAFOATE
     Indication: ASTHMA
     Dosage: 250 ?G, BID
     Route: 055

REACTIONS (6)
  - Respiratory tract infection [Recovering/Resolving]
  - Asthma [Recovering/Resolving]
  - Body height below normal [Recovered/Resolved]
  - Growth retardation [Unknown]
  - Asthma exercise induced [Unknown]
  - Mycoplasma infection [Unknown]
